FAERS Safety Report 4896947-2 (Version None)
Quarter: 2006Q1

REPORT INFORMATION
  Report Type: 
  Country: None (occurrence: None)
  Receive Date: 20060127
  Receipt Date: 20060113
  Transmission Date: 20060701
  Serious: Yes (Hospitalization)
  Sender: FDA-Public Use
  Company Number: FR200601002187

PATIENT
  Age: 45 Year
  Sex: Male

DRUGS (2)
  1. PROZAC [Suspect]
     Indication: DEPRESSION
     Dosage: 10 MG, DAILY (1/D), ORAL
     Route: 048
     Dates: start: 20051219, end: 20060109
  2. NOVOMIX (INSULIN ASPART) [Concomitant]

REACTIONS (1)
  - HYPOGLYCAEMIC COMA [None]
